FAERS Safety Report 5419709-6 (Version None)
Quarter: 2007Q3

REPORT INFORMATION
  Report Type: 
  Country: None (occurrence: None)
  Receive Date: 20070820
  Receipt Date: 20070808
  Transmission Date: 20080115
  Serious: Yes (Hospitalization)
  Sender: FDA-Public Use
  Company Number: FR-PURDUE-GBR_2007_0003183

PATIENT
  Age: 50 Year
  Sex: Female

DRUGS (11)
  1. OXYNORM CAPSULES 5 MG [Suspect]
     Indication: SCIATICA
     Dosage: 20 MG, DAILY
     Route: 048
     Dates: start: 20070528, end: 20070602
  2. MYOLASTAN [Suspect]
     Indication: SCIATICA
     Dosage: 3 DF, DAILY
     Route: 048
     Dates: start: 20070528, end: 20070602
  3. TOPALGIC ^HOUDE^ [Suspect]
     Indication: SCIATICA
     Dosage: 400 MG, DAILY
     Route: 048
     Dates: start: 20070528, end: 20070602
  4. LASIX [Concomitant]
     Indication: DRUG USE FOR UNKNOWN INDICATION
     Route: 065
  5. KAYEXALATE [Concomitant]
     Indication: DRUG USE FOR UNKNOWN INDICATION
     Route: 065
  6. SPECIAFOLDINE [Concomitant]
     Indication: DRUG USE FOR UNKNOWN INDICATION
     Route: 065
  7. TARDYFERON [Concomitant]
     Indication: DRUG USE FOR UNKNOWN INDICATION
     Route: 065
  8. CALCIDIA [Concomitant]
     Indication: DRUG USE FOR UNKNOWN INDICATION
     Route: 065
  9. OMEPRAZOLE [Concomitant]
     Indication: DRUG USE FOR UNKNOWN INDICATION
     Route: 065
  10. ATENOLOL [Concomitant]
     Indication: DRUG USE FOR UNKNOWN INDICATION
     Route: 065
  11. PRAVASTATIN [Concomitant]
     Indication: DRUG USE FOR UNKNOWN INDICATION
     Route: 065

REACTIONS (2)
  - RASH MACULO-PAPULAR [None]
  - RENAL FAILURE [None]
